FAERS Safety Report 5927408-7 (Version None)
Quarter: 2008Q4

REPORT INFORMATION
  Report Type: 
  Country: None (occurrence: None)
  Receive Date: 20081022
  Receipt Date: 20081022
  Transmission Date: 20090506
  Serious: Yes (Hospitalization, Disabling)
  Sender: FDA-Public Use
  Company Number: None

PATIENT
  Age: 80 Year
  Sex: Female
  Weight: 65.7716 kg

DRUGS (6)
  1. NORVASC [Suspect]
     Indication: HYPERTENSION
     Dosage: 1 DAILY MOUTH
     Route: 048
     Dates: start: 20070801
  2. LEVAQUIN [Suspect]
     Indication: CYSTITIS
     Dosage: 1 DAILY MOUTH
     Route: 048
     Dates: start: 20080421
  3. ATENOLOL [Concomitant]
  4. COZAAR [Concomitant]
  5. PLAVIX [Concomitant]
  6. ZETIA [Concomitant]

REACTIONS (7)
  - BEDRIDDEN [None]
  - BLADDER PROLAPSE [None]
  - CONSTIPATION [None]
  - CYSTITIS [None]
  - DIARRHOEA [None]
  - MALAISE [None]
  - URINARY RETENTION [None]
